FAERS Safety Report 11007125 (Version 2)
Quarter: 2015Q2

REPORT INFORMATION
  Report Type: Report from Study
  Country: US (occurrence: US)
  Receive Date: 20150409
  Receipt Date: 20150504
  Transmission Date: 20150821
  Serious: Yes (Hospitalization, Other)
  Sender: FDA-Public Use
  Company Number: US-GILEAD-2015-0142053

PATIENT
  Age: 55 Year
  Sex: Female

DRUGS (1)
  1. IDELALISIB [Suspect]
     Active Substance: IDELALISIB
     Indication: B-CELL LYMPHOMA STAGE III
     Dosage: 150 MG, BID
     Route: 048
     Dates: start: 20150121, end: 20150305

REACTIONS (2)
  - Toxicity to various agents [Recovered/Resolved]
  - Interstitial lung disease [Recovered/Resolved]
